FAERS Safety Report 15075430 (Version 2)
Quarter: 2023Q4

REPORT INFORMATION
  Report Type: Spontaneous
  Country: US (occurrence: US)
  Receive Date: 20180627
  Receipt Date: 20231128
  Transmission Date: 20240110
  Serious: No
  Sender: FDA-Public Use
  Company Number: US-SAOL THERAPEUTICS-2018SAO00621

PATIENT
  Age: 59 Year
  Sex: Female

DRUGS (6)
  1. BACLOFEN [Suspect]
     Active Substance: BACLOFEN
     Dosage: 45.62 ?G, \DAY
     Route: 037
  2. BACLOFEN [Suspect]
     Active Substance: BACLOFEN
     Dosage: 54.98 ?G,\DAY MAX
     Route: 037
  3. DILAUDID [Suspect]
     Active Substance: HYDROMORPHONE HYDROCHLORIDE
     Dosage: 380.1 ?G, \DAY
     Route: 037
  4. DILAUDID [Suspect]
     Active Substance: HYDROMORPHONE HYDROCHLORIDE
     Dosage: 458.2 ?G, UNK
     Route: 037
  5. BUPIVACAINE [Suspect]
     Active Substance: BUPIVACAINE
     Dosage: 9.123 MG, \DAY
     Route: 037
  6. BUPIVACAINE [Suspect]
     Active Substance: BUPIVACAINE
     Dosage: 10.996 MG, UNK
     Route: 037

REACTIONS (4)
  - Lethargy [Unknown]
  - Dizziness [Unknown]
  - Overdose [Unknown]
  - Weight decreased [Unknown]

NARRATIVE: CASE EVENT DATE: 20171006
